FAERS Safety Report 10175159 (Version 1)
Quarter: 2014Q2

REPORT INFORMATION
  Report Type: Spontaneous
  Country: US (occurrence: US)
  Receive Date: 20140515
  Receipt Date: 20140515
  Transmission Date: 20141212
  Serious: No
  Sender: FDA-Public Use
  Company Number: US-VIVUS-2014V1000043

PATIENT
  Age: 50 Year
  Sex: Male
  Weight: 139.83 kg

DRUGS (2)
  1. QSYMIA 3.75MG/23MG [Suspect]
     Indication: WEIGHT DECREASED
     Route: 048
     Dates: start: 201312, end: 201312
  2. QSYMIA 7.5MG/46MG [Suspect]
     Indication: WEIGHT DECREASED
     Route: 048
     Dates: start: 201312, end: 20140119

REACTIONS (3)
  - Energy increased [Recovered/Resolved]
  - Feeling jittery [Recovered/Resolved]
  - Speech disorder [Recovered/Resolved]
